FAERS Safety Report 5634265-5 (Version None)
Quarter: 2008Q1

REPORT INFORMATION
  Report Type: 
  Country: None (occurrence: None)
  Receive Date: 20080131
  Receipt Date: 20071011
  Transmission Date: 20080703
  Serious: Yes (Hospitalization)
  Sender: FDA-Public Use
  Company Number: 162820USA

PATIENT
  Age: 34 Year
  Sex: Male

DRUGS (2)
  1. COPAXONE [Suspect]
     Indication: MULTIPLE SCLEROSIS
     Dosage: 20 MG, SUBCUTANEOUS
     Route: 058
     Dates: start: 20070701
  2. BETASERON [Suspect]
     Indication: MULTIPLE SCLEROSIS
     Dosage: 250 MICROGRAMS, 8 MIU, EVERY OTHER DAY, SUBCUTANEOUS
     Route: 058
     Dates: start: 20050218, end: 20070714

REACTIONS (4)
  - DIPLOPIA [None]
  - HEADACHE [None]
  - MULTIPLE SCLEROSIS RELAPSE [None]
  - OPTIC NEURITIS [None]
